FAERS Safety Report 13659456 (Version 4)
Quarter: 2017Q4

REPORT INFORMATION
  Report Type: Spontaneous
  Country: US (occurrence: US)
  Receive Date: 20170616
  Receipt Date: 20171129
  Transmission Date: 20180320
  Serious: Yes (Congenital Anomaly, Other)
  Sender: FDA-Public Use
  Company Number: PHEH2017US018262

PATIENT
  Sex: Male

DRUGS (2)
  1. ONDANSETRON [Suspect]
     Active Substance: ONDANSETRON
     Indication: FOETAL EXPOSURE DURING PREGNANCY
     Dosage: MOTHER^S DOSE: 4 MG, PRN
     Route: 064
  2. ZOFRAN [Suspect]
     Active Substance: ONDANSETRON HYDROCHLORIDE
     Indication: FOETAL EXPOSURE DURING PREGNANCY
     Dosage: MOTHER^S DOSE: 1 DF, TID, PRN
     Route: 064

REACTIONS (13)
  - Jaundice neonatal [Unknown]
  - Cardiac murmur [Unknown]
  - Congenital aortic valve incompetence [Unknown]
  - Congenital inguinal hernia [Unknown]
  - Atrial septal defect [Unknown]
  - Congenital cystic lung [Unknown]
  - Pulmonary malformation [Unknown]
  - Left-to-right cardiac shunt [Unknown]
  - Pyelocaliectasis [Unknown]
  - Laevocardia [Unknown]
  - Ventricular hypertrophy [Unknown]
  - Premature baby [Unknown]
  - Foetal exposure during pregnancy [Unknown]
